FAERS Safety Report 16585099 (Version 1)
Quarter: 2019Q3

REPORT INFORMATION
  Report Type: Spontaneous
  Country: FR (occurrence: FR)
  Receive Date: 20190717
  Receipt Date: 20190717
  Transmission Date: 20191004
  Serious: Yes (Hospitalization)
  Sender: FDA-Public Use
  Company Number: FR-MYLANLABS-2019M1066572

PATIENT
  Age: 80 Year
  Sex: Male
  Weight: 75 kg

DRUGS (8)
  1. FLUOROURACILE [Suspect]
     Active Substance: FLUOROURACIL
     Indication: ADENOCARCINOMA OF COLON
     Dosage: 500 MILLIGRAM, CYCLE
     Route: 040
     Dates: start: 20181011
  2. PLITICAN [Suspect]
     Active Substance: ALIZAPRIDE HYDROCHLORIDE
     Indication: PREMEDICATION
     Dosage: 100 MILLIGRAM, CYCLE
     Route: 042
     Dates: start: 20181011
  3. EMEND [Suspect]
     Active Substance: APREPITANT
     Indication: PREMEDICATION
     Dosage: 125 MILLIGRAM, CYCLE
     Route: 048
     Dates: start: 20181011
  4. ZOPHREN                            /00955301/ [Suspect]
     Active Substance: ONDANSETRON
     Indication: PREMEDICATION
     Dosage: 8 MILLIGRAM, CYCLE
     Route: 042
     Dates: start: 20181011
  5. FLUOROURACILE [Suspect]
     Active Substance: FLUOROURACIL
     Dosage: 3000 MILLIGRAM, CYCLE
     Route: 041
     Dates: start: 20181011
  6. OXALIPLATIN. [Suspect]
     Active Substance: OXALIPLATIN
     Indication: ADENOCARCINOMA OF COLON
     Dosage: 90 MILLIGRAM, CYCLE
     Route: 041
     Dates: start: 20181011, end: 20181011
  7. FOLINATE DE CALCIUM [Suspect]
     Active Substance: LEUCOVORIN CALCIUM
     Indication: ADENOCARCINOMA OF COLON
     Dosage: 750 MILLIGRAM, CYCLE
     Route: 042
     Dates: start: 20181011
  8. METHYLPREDNISOLONE. [Suspect]
     Active Substance: METHYLPREDNISOLONE
     Indication: PREMEDICATION
     Dosage: 40 MILLIGRAM, CYCLE
     Route: 042
     Dates: start: 20181011

REACTIONS (4)
  - Oxygen saturation decreased [Recovered/Resolved]
  - Malaise [Recovered/Resolved]
  - Pyrexia [Recovered/Resolved]
  - Chills [Recovered/Resolved]

NARRATIVE: CASE EVENT DATE: 20181011
